FAERS Safety Report 7094428-1 (Version None)
Quarter: 2010Q4

REPORT INFORMATION
  Report Type: 
  Country: None (occurrence: None)
  Receive Date: 20101110
  Receipt Date: 20101027
  Transmission Date: 20110411
  Serious: Yes (Hospitalization, Disabling, Other)
  Sender: FDA-Public Use
  Company Number: PHHY2009AT42687

PATIENT
  Age: 67 Year
  Sex: Male

DRUGS (4)
  1. TASIGNA [Suspect]
     Indication: CHRONIC MYELOID LEUKAEMIA
     Dosage: 800 MG, 200 X 4
     Dates: start: 20061201
  2. MARCUMAR [Concomitant]
     Indication: PERIPHERAL ARTERIAL OCCLUSIVE DISEASE
     Dosage: UNK
     Dates: start: 20090101
  3. ACEMIN [Concomitant]
     Indication: PERIPHERAL ARTERIAL OCCLUSIVE DISEASE
     Dosage: 5 MG, BID
     Dates: start: 20060101
  4. PLAVIX [Concomitant]
     Indication: PERIPHERAL ARTERIAL OCCLUSIVE DISEASE
     Dosage: 75 MG, BID
     Dates: start: 20090101

REACTIONS (19)
  - ANGIOPLASTY [None]
  - ARTERIAL OCCLUSIVE DISEASE [None]
  - ARTERIAL STENT INSERTION [None]
  - FEMORAL ARTERY OCCLUSION [None]
  - GANGRENE [None]
  - INTERMITTENT CLAUDICATION [None]
  - LEG AMPUTATION [None]
  - METASTASES TO LUNG [None]
  - METASTATIC RENAL CELL CARCINOMA [None]
  - NEOPLASM MALIGNANT [None]
  - PAIN IN EXTREMITY [None]
  - PERIPHERAL ARTERIAL OCCLUSIVE DISEASE [None]
  - PERIPHERAL ISCHAEMIA [None]
  - PSEUDOMONAS INFECTION [None]
  - THROMBECTOMY [None]
  - TUMOUR EXCISION [None]
  - VASCULAR GRAFT [None]
  - VASCULAR GRAFT OCCLUSION [None]
  - VASCULAR OPERATION [None]
